FAERS Safety Report 10566385 (Version 2)
Quarter: 2014Q4

REPORT INFORMATION
  Report Type: Spontaneous
  Country: None (occurrence: JP)
  Receive Date: 20141105
  Receipt Date: 20141215
  Transmission Date: 20150529
  Serious: Yes (Disabling)
  Sender: FDA-Public Use
  Company Number: JP-EISAI MEDICAL RESEARCH-EC-2014-001308

PATIENT
  Sex: Male

DRUGS (3)
  1. EXCEGRAN [Suspect]
     Active Substance: ZONISAMIDE
     Indication: FOETAL EXPOSURE DURING PREGNANCY
     Dosage: UNKNOWN
     Route: 064
     Dates: end: 2009
  2. ALEVIATIN [Suspect]
     Active Substance: PHENYTOIN SODIUM
     Indication: FOETAL EXPOSURE DURING PREGNANCY
     Dosage: UNKNOWN
     Route: 064
     Dates: end: 2009
  3. RIVOTRIL [Concomitant]
     Active Substance: CLONAZEPAM
     Indication: PRODUCT USED FOR UNKNOWN INDICATION
     Dosage: UNKNOWN
     Route: 065

REACTIONS (2)
  - Attention deficit/hyperactivity disorder [Unknown]
  - Foetal exposure during pregnancy [Recovered/Resolved]

NARRATIVE: CASE EVENT DATE: 2009
